FAERS Safety Report 16688246 (Version 1)
Quarter: 2019Q3

REPORT INFORMATION
  Report Type: Spontaneous
  Country: NL (occurrence: GB)
  Receive Date: 20190809
  Receipt Date: 20190809
  Transmission Date: 20191004
  Serious: Yes (Hospitalization)
  Sender: FDA-Public Use
  Company Number: GB-FRESENIUS KABI-FK201908729

PATIENT
  Age: 74 Year
  Sex: Female
  Weight: 52 kg

DRUGS (11)
  1. SEVELAMER [Concomitant]
     Active Substance: SEVELAMER
  2. SACCHARATED IRON OXIDE [Suspect]
     Active Substance: IRON SUCROSE
     Indication: IRON DEFICIENCY ANAEMIA
     Dosage: DILUTED IN 100ML NACL 0.9%
     Route: 042
     Dates: start: 20190709, end: 20190709
  3. CYCLIZINE [Concomitant]
     Active Substance: CYCLIZINE
  4. CINACALCET. [Concomitant]
     Active Substance: CINACALCET
     Indication: HYPERCALCAEMIA
  5. ACETYLSALICYLIC ACID [Concomitant]
     Active Substance: ASPIRIN
  6. SODIUM BICARBONATE. [Concomitant]
     Active Substance: SODIUM BICARBONATE
  7. DARBEPOETIN ALFA [Concomitant]
     Active Substance: DARBEPOETIN ALFA
  8. SODIUM CHLORIDE (MANUFACTURER UNKNOWN) [Suspect]
     Active Substance: SODIUM CHLORIDE
     Indication: PRODUCT USED FOR UNKNOWN INDICATION
     Dosage: UNK
     Route: 042
     Dates: start: 20190709, end: 20190709
  9. BISOPROLOL [Concomitant]
     Active Substance: BISOPROLOL
  10. TINZAPARIN [Concomitant]
     Active Substance: TINZAPARIN
  11. ATORVASTATIN [Concomitant]
     Active Substance: ATORVASTATIN

REACTIONS (4)
  - Arteriovenous fistula site complication [Unknown]
  - Dizziness [Unknown]
  - Oxygen saturation decreased [Recovered/Resolved]
  - Hypotension [Recovered/Resolved]

NARRATIVE: CASE EVENT DATE: 20190709
